FAERS Safety Report 7941074-0 (Version None)
Quarter: 2011Q4

REPORT INFORMATION
  Report Type: 
  Country: None (occurrence: None)
  Receive Date: 20111114
  Receipt Date: 20110817
  Transmission Date: 20120403
  Serious: Yes (Other)
  Sender: FDA-Public Use
  Company Number: 2011S1000535

PATIENT

DRUGS (5)
  1. CEFTRIAXONE [Concomitant]
  2. ALL OTHER THERAPEUTIC PRODUCTS [Concomitant]
  3. CUBICIN [Suspect]
     Indication: ARTHRITIS BACTERIAL
     Dosage: 6 MG/KG;QD;IV
     Route: 042
  4. CUBICIN [Suspect]
     Indication: OSTEOMYELITIS CHRONIC
     Dosage: 6 MG/KG;QD;IV
     Route: 042
  5. VANCOMYCIN [Concomitant]

REACTIONS (2)
  - LUNG DISORDER [None]
  - ABSCESS [None]
